FAERS Safety Report 10204618 (Version 1)
Quarter: 2014Q2

REPORT INFORMATION
  Report Type: Spontaneous
  Country: US (occurrence: None)
  Receive Date: 20140527
  Receipt Date: 20140527
  Transmission Date: 20141212
  Serious: Yes (Other)
  Sender: FDA-Public Use
  Company Number: None

PATIENT
  Age: 53 Year
  Sex: Female
  Weight: 72.58 kg

DRUGS (1)
  1. DEPAKOTE [Suspect]
     Indication: BIPOLAR DISORDER
     Dosage: 2 TABLETS, BID, ORAL
     Route: 048

REACTIONS (6)
  - Agitation [None]
  - Anxiety [None]
  - Insomnia [None]
  - Mood swings [None]
  - Condition aggravated [None]
  - Product substitution issue [None]
